FAERS Safety Report 5704601-X (Version None)
Quarter: 2008Q2

REPORT INFORMATION
  Report Type: 
  Country: None (occurrence: None)
  Receive Date: 20080414
  Receipt Date: 20080407
  Transmission Date: 20081010
  Serious: Yes (Other)
  Sender: FDA-Public Use
  Company Number: NZ-BRISTOL-MYERS SQUIBB COMPANY-14140511

PATIENT
  Sex: Male

DRUGS (1)
  1. KENACORT-A40 INJ [Suspect]

REACTIONS (1)
  - CHORIORETINOPATHY [None]
